FAERS Safety Report 18361681 (Version 2)
Quarter: 2020Q4

REPORT INFORMATION
  Report Type: Report from Study
  Country: AR (occurrence: AR)
  Receive Date: 20201008
  Receipt Date: 20201021
  Transmission Date: 20210114
  Serious: Yes (Other)
  Sender: FDA-Public Use
  Company Number: NVSC2020AR269485

PATIENT
  Age: 50 Year
  Sex: Male

DRUGS (2)
  1. COSENTYX [Suspect]
     Active Substance: SECUKINUMAB
     Indication: PSORIASIS
     Dosage: 300 MG, QMO
     Route: 058
     Dates: start: 20200121, end: 20200601
  2. COSENTYX [Suspect]
     Active Substance: SECUKINUMAB
     Indication: PSORIATIC ARTHROPATHY

REACTIONS (6)
  - Paraesthesia [Unknown]
  - Treatment failure [Unknown]
  - Carpal tunnel syndrome [Recovering/Resolving]
  - Synovitis [Unknown]
  - Pain in extremity [Recovering/Resolving]
  - Tenosynovitis [Unknown]

NARRATIVE: CASE EVENT DATE: 20200511
